FAERS Safety Report 5633483-X (Version None)
Quarter: 2008Q1

REPORT INFORMATION
  Report Type: 
  Country: None (occurrence: None)
  Receive Date: 20080221
  Receipt Date: 20080209
  Transmission Date: 20080703
  Serious: Yes (Other)
  Sender: FDA-Public Use
  Company Number: US-PFIZER INC-2007106371

PATIENT
  Sex: Female

DRUGS (1)
  1. CHANTIX [Suspect]

REACTIONS (6)
  - ANGER [None]
  - CONSTIPATION [None]
  - GINGIVAL PAIN [None]
  - NAUSEA [None]
  - SLEEP DISORDER [None]
  - TOOTHACHE [None]
